FAERS Safety Report 9469985 (Version 2)
Quarter: 2013Q3

REPORT INFORMATION
  Report Type: Spontaneous
  Country: US (occurrence: US)
  Receive Date: 20130822
  Receipt Date: 20130912
  Transmission Date: 20140515
  Serious: Yes (Other)
  Sender: FDA-Public Use
  Company Number: US-BAYER-2013-099249

PATIENT
  Age: 39 Year
  Sex: Female

DRUGS (1)
  1. MIRENA [Suspect]
     Indication: MENORRHAGIA
     Dosage: 20 MCG/24HR, CONT
     Route: 015
     Dates: start: 20130410, end: 20130808

REACTIONS (3)
  - Genital haemorrhage [None]
  - Device expulsion [None]
  - Drug ineffective [None]
